FAERS Safety Report 4883045-7 (Version None)
Quarter: 2005Q4

REPORT INFORMATION
  Report Type: 
  Country: None (occurrence: None)
  Receive Date: 20051201
  Receipt Date: 20050927
  Transmission Date: 20060501
  Serious: No
  Sender: FDA-Public Use
  Company Number: 2005PV002500

PATIENT
  Age: 80 Year
  Sex: Male
  Weight: 96.1626 kg

DRUGS (19)
  1. BYETTA [Suspect]
     Indication: DIABETES MELLITUS NON-INSULIN-DEPENDENT
     Dosage: SEE IMAGE
     Route: 058
     Dates: start: 20050801, end: 20050918
  2. BYETTA [Suspect]
     Indication: DIABETES MELLITUS NON-INSULIN-DEPENDENT
     Dosage: SEE IMAGE
     Route: 058
     Dates: start: 20050918
  3. HYDROCORTISONE [Suspect]
     Indication: ARTHRALGIA
  4. LANTUS [Concomitant]
  5. GLYBURIDE [Concomitant]
  6. LASIX [Concomitant]
  7. ZAROXOLYN [Concomitant]
  8. CYMBALTA [Concomitant]
  9. PLAVIX [Concomitant]
  10. ISOSORBIDE [Concomitant]
  11. FELDIPINE [Concomitant]
  12. NEURONTIN [Concomitant]
  13. CANDESARTAN [Concomitant]
  14. EXTRA STRENGTH TYLENOL [Concomitant]
  15. TERAZOSIN [Concomitant]
  16. METOPOROLOL [Concomitant]
  17. FORMATEL INHALER [Concomitant]
  18. ZAROXOLYN [Concomitant]
  19. PREDNISONE [Concomitant]

REACTIONS (6)
  - BLOOD GLUCOSE INCREASED [None]
  - INJECTION SITE BRUISING [None]
  - INJECTION SITE PRURITUS [None]
  - OEDEMA PERIPHERAL [None]
  - PAIN [None]
  - WEIGHT INCREASED [None]
